FAERS Safety Report 15081012 (Version 1)
Quarter: 2018Q2

REPORT INFORMATION
  Report Type: Spontaneous
  Country: FR (occurrence: FR)
  Receive Date: 20180628
  Receipt Date: 20180628
  Transmission Date: 20180711
  Serious: Yes (Hospitalization)
  Sender: FDA-Public Use
  Company Number: FR-SUN PHARMACEUTICAL INDUSTRIES LTD-2018RR-176898

PATIENT
  Age: 87 Year
  Sex: Female
  Weight: 55 kg

DRUGS (7)
  1. AMIODARONE [Concomitant]
     Active Substance: AMIODARONE
     Indication: PRODUCT USED FOR UNKNOWN INDICATION
     Dosage: 1 CP PAR JOUR SAUF LE WE
     Route: 048
     Dates: end: 20180406
  2. UMULINE RAPIDE 100 UI/ML, SOLUTION INJECTABLE EN CARTOUCHE [Concomitant]
     Indication: PRODUCT USED FOR UNKNOWN INDICATION
     Dosage: 6 IU, UNK
     Route: 058
  3. COUMADINE 5 MG, COMPRIME SECABLE [Concomitant]
     Active Substance: WARFARIN SODIUM
     Indication: PRODUCT USED FOR UNKNOWN INDICATION
     Dosage: 1 GBQ, UNK
     Route: 048
  4. CARBOSYMAG, GELULE [Concomitant]
     Indication: PRODUCT USED FOR UNKNOWN INDICATION
     Dosage: 2 DF, UNK
     Route: 048
     Dates: end: 20180406
  5. ZOLPIDEM [Suspect]
     Active Substance: ZOLPIDEM\ZOLPIDEM TARTRATE
     Indication: PRODUCT USED FOR UNKNOWN INDICATION
     Dosage: 10 MG, UNK
     Route: 048
     Dates: start: 20180401, end: 20180410
  6. LERCANIDIPINE (CHLORHYDRATE DE) [Concomitant]
     Active Substance: LERCANIDIPINE HYDROCHLORIDE
     Indication: PRODUCT USED FOR UNKNOWN INDICATION
     Dosage: 20 MG, UNK
     Route: 048
     Dates: end: 20180424
  7. LANTUS SOLOSTAR 100 UNITES/ ML, SOLUTION INJECTABLE EN STYLO PREREMPLI [Concomitant]
     Indication: PRODUCT USED FOR UNKNOWN INDICATION
     Dosage: 8 IU, UNK
     Route: 058

REACTIONS (2)
  - Fall [Recovered/Resolved]
  - Withdrawal syndrome [Recovered/Resolved]

NARRATIVE: CASE EVENT DATE: 20180405
